FAERS Safety Report 15741757 (Version 1)
Quarter: 2018Q4

REPORT INFORMATION
  Report Type: Spontaneous
  Country: ES (occurrence: ES)
  Receive Date: 20181219
  Receipt Date: 20181219
  Transmission Date: 20190205
  Serious: Yes (Other)
  Sender: FDA-Public Use
  Company Number: ES-MYLANLABS-2018M1094049

PATIENT
  Age: 67 Year
  Sex: Male

DRUGS (3)
  1. ENALAPRIL [Suspect]
     Active Substance: ENALAPRIL
     Indication: PROTEINURIA
     Dosage: UNK
     Route: 048
     Dates: start: 2011, end: 2011
  2. COLCHICINE. [Concomitant]
     Active Substance: COLCHICINE
     Indication: FAMILIAL MEDITERRANEAN FEVER
     Dosage: 0.5 MG, Q12H
     Dates: start: 201101, end: 2011
  3. COLCHICINE. [Concomitant]
     Active Substance: COLCHICINE
     Dosage: 1 MG, Q12H
     Dates: start: 201101, end: 201101

REACTIONS (4)
  - Hypotension [Unknown]
  - Product use in unapproved indication [Unknown]
  - Renal impairment [Recovered/Resolved]
  - Nephrotic syndrome [Recovered/Resolved]

NARRATIVE: CASE EVENT DATE: 2011
